FAERS Safety Report 9513278 (Version 1)
Quarter: 2013Q1

REPORT INFORMATION
  Report Type: Spontaneous
  Country: US (occurrence: None)
  Receive Date: 20130305
  Receipt Date: 20130305
  Transmission Date: 20140127
  Serious: Yes (Hospitalization)
  Sender: FDA-Public Use
  Company Number: 163-21880-12021731

PATIENT
  Age: 82 Year
  Sex: Female
  Weight: 52.16 kg

DRUGS (5)
  1. REVLIMID (LENALIDOMIDE) (25 MILLIGRAM, CAPSULES) [Suspect]
     Indication: PLASMA CELL MYELOMA
     Route: 048
     Dates: start: 20110721
  2. DEXAMETHASONE (DEXAMETHASONE) [Concomitant]
  3. LEVOTHYROXINE (LEVOTHYROXINE) [Concomitant]
  4. ATENOLOL (ATENOLOL) [Concomitant]
  5. WARFARIN (WARFARIN) [Concomitant]

REACTIONS (1)
  - Deep vein thrombosis [None]
